FAERS Safety Report 9314167 (Version 2)
Quarter: 2019Q2

REPORT INFORMATION
  Report Type: Spontaneous
  Country: FR (occurrence: FR)
  Receive Date: 20130529
  Receipt Date: 20190425
  Transmission Date: 20190711
  Serious: Yes (Death, Hospitalization, Other)
  Sender: FDA-Public Use
  Company Number: FR-ACCORD-017810

PATIENT
  Age: 76 Year
  Sex: Female

DRUGS (2)
  1. MYCOPHENOLIC ACID. [Suspect]
     Active Substance: MYCOPHENOLIC ACID
     Indication: PEMPHIGOID
  2. CLOBETASOL [Suspect]
     Active Substance: CLOBETASOL
     Indication: PEMPHIGOID
     Dosage: TOPICALCLOBETASOL PROPIONATE (TCP)
     Route: 061

REACTIONS (8)
  - Staphylococcal infection [Unknown]
  - White blood cell count increased [Unknown]
  - Necrotising fasciitis [Fatal]
  - Septic shock [Fatal]
  - Beta haemolytic streptococcal infection [Unknown]
  - Off label use [Unknown]
  - C-reactive protein increased [Unknown]
  - Neutrophil count increased [Unknown]
